FAERS Safety Report 12620116 (Version 1)
Quarter: 2016Q3

REPORT INFORMATION
  Report Type: Spontaneous
  Country: US (occurrence: US)
  Receive Date: 20160803
  Receipt Date: 20160803
  Transmission Date: 20161109
  Serious: Yes (Other)
  Sender: FDA-Public Use
  Company Number: US-ASTRAZENECA-2016SE82601

PATIENT
  Age: 819 Month
  Sex: Female
  Weight: 83.5 kg

DRUGS (4)
  1. PRANDIN [Concomitant]
     Active Substance: REPAGLINIDE
     Indication: TYPE 2 DIABETES MELLITUS
     Route: 048
  2. GLIPIZIDE. [Concomitant]
     Active Substance: GLIPIZIDE
     Indication: TYPE 2 DIABETES MELLITUS
     Route: 048
  3. BYDUREON [Suspect]
     Active Substance: EXENATIDE
     Indication: TYPE 2 DIABETES MELLITUS
     Route: 058
  4. FORTEO [Concomitant]
     Active Substance: TERIPARATIDE
     Indication: OSTEOPOROSIS
     Route: 058
     Dates: start: 20160726

REACTIONS (11)
  - Gait disturbance [Unknown]
  - Body height decreased [Unknown]
  - Decreased appetite [Unknown]
  - Activities of daily living impaired [Unknown]
  - Dysgeusia [Unknown]
  - Spinal fracture [Unknown]
  - Weight decreased [Unknown]
  - Injection site pain [Unknown]
  - Rib fracture [Unknown]
  - Fall [Unknown]
  - Osteoporosis [Unknown]

NARRATIVE: CASE EVENT DATE: 201601
